FAERS Safety Report 8136109-9 (Version None)
Quarter: 2012Q1

REPORT INFORMATION
  Report Type: 
  Country: None (occurrence: None)
  Receive Date: 20120214
  Receipt Date: 20120126
  Transmission Date: 20120608
  Serious: No
  Sender: FDA-Public Use
  Company Number: US-COVIDIEN/TYCO HEALTHCARE/MALLINCKRODT-T201200506

PATIENT
  Sex: Female
  Weight: 69.841 kg

DRUGS (8)
  1. FENTANYL-100 [Suspect]
     Indication: PAIN
     Dosage: 50 UG/HR, 1 FTS Q 72 HOURS
     Route: 062
     Dates: start: 20120116, end: 20120125
  2. NEURONTIN [Concomitant]
     Indication: CONVULSION
     Dosage: 800 MG, QID
     Route: 048
  3. BACLOFEN [Concomitant]
     Indication: MUSCLE RELAXANT THERAPY
     Dosage: UNK, QD AT BEDTIME
     Route: 048
  4. TRILEPTAL [Concomitant]
     Indication: CONVULSION
     Dosage: 900 MG, QD AT BEDTIME
     Route: 048
  5. TRILEPTAL [Concomitant]
     Indication: NEUROPATHY PERIPHERAL
  6. ZANAFLEX [Concomitant]
     Indication: TEMPOROMANDIBULAR JOINT SYNDROME
     Dosage: UNK, QD
     Route: 048
  7. NEURONTIN [Concomitant]
     Indication: NEUROPATHY PERIPHERAL
  8. DIAZEPAM [Concomitant]
     Indication: ANXIETY
     Dosage: 10 MG, TID PRN
     Route: 048

REACTIONS (2)
  - DRUG SCREEN NEGATIVE [None]
  - DRUG INEFFECTIVE [None]
